FAERS Safety Report 9895688 (Version 1)
Quarter: 2014Q1

REPORT INFORMATION
  Report Type: Spontaneous
  Country: US (occurrence: US)
  Receive Date: 20140213
  Receipt Date: 20140213
  Transmission Date: 20141002
  Serious: No
  Sender: FDA-Public Use
  Company Number: US-BRISTOL-MYERS SQUIBB COMPANY-18759357

PATIENT
  Age: 48 Year
  Sex: Female
  Weight: 113.38 kg

DRUGS (1)
  1. ORENCIA [Suspect]
     Dosage: LAST INF:FEB 2013
     Dates: start: 201212

REACTIONS (2)
  - Urinary tract infection [Unknown]
  - Hypersensitivity [Unknown]
